FAERS Safety Report 5268294-0 (Version None)
Quarter: 2007Q1

REPORT INFORMATION
  Report Type: 
  Country: None (occurrence: None)
  Receive Date: 20070319
  Receipt Date: 20070307
  Transmission Date: 20070707
  Serious: Yes (Life-Threatening, Hospitalization)
  Sender: FDA-Public Use
  Company Number: GB-AMGEN-UK213923

PATIENT
  Sex: Female
  Weight: 76.7 kg

DRUGS (5)
  1. NEULASTA [Suspect]
     Indication: CHEMOTHERAPY
     Route: 065
     Dates: start: 20061003, end: 20061128
  2. EPIRUBICIN [Suspect]
     Route: 065
     Dates: start: 20061003, end: 20061128
  3. CYCLOPHOSPHAMIDE [Suspect]
     Route: 065
     Dates: start: 20061003, end: 20061128
  4. METHOTREXATE [Suspect]
     Route: 065
     Dates: start: 20061003, end: 20061128
  5. FLUOROURACIL [Suspect]
     Route: 065
     Dates: start: 20061003, end: 20061128

REACTIONS (3)
  - DYSPNOEA [None]
  - LUNG CONSOLIDATION [None]
  - PYREXIA [None]
